FAERS Safety Report 21785456 (Version 1)
Quarter: 2022Q4

REPORT INFORMATION
  Report Type: Spontaneous
  Country: US (occurrence: US)
  Receive Date: 20221227
  Receipt Date: 20221227
  Transmission Date: 20230112
  Serious: No
  Sender: FDA-Public Use
  Company Number: US-009507513-2212USA008057

PATIENT
  Age: 73 Year
  Sex: Female

DRUGS (20)
  1. NOXAFIL [Suspect]
     Active Substance: POSACONAZOLE
     Dosage: UNK
     Dates: start: 20220504
  2. NOXAFIL [Suspect]
     Active Substance: POSACONAZOLE
     Dosage: PRESCRIBED: 300 MILLIGRAM, QD WITH BREAKFAST
     Route: 048
     Dates: start: 20220630
  3. TYLENOL EXTRA STRENGTH [Concomitant]
     Active Substance: ACETAMINOPHEN
     Dosage: 500 MILLIGRAM, EVERY 4HOURS AS NEEDED FOR PAIN
     Route: 048
     Dates: start: 20190823
  4. NORVASC [Concomitant]
     Active Substance: AMLODIPINE BESYLATE
     Dosage: 5 MILLIGRAM, QD
     Route: 048
     Dates: start: 20220220
  5. CALCIUM CITRATE\CHOLECALCIFEROL [Concomitant]
     Active Substance: CALCIUM CITRATE\CHOLECALCIFEROL
     Dosage: 200 MG/250 UNIT. 3 DOSAGE FORM, AT LUNCHAND DINNER
     Route: 048
     Dates: start: 20190823
  6. PEPCID [Concomitant]
     Active Substance: FAMOTIDINE
     Dosage: 20 MILLIGRAM, QD
     Route: 048
     Dates: start: 20220213
  7. XALATAN [Concomitant]
     Active Substance: LATANOPROST
     Dosage: PLACE INTO BOTH EYES NIGHTLY
     Route: 047
     Dates: start: 20210319
  8. PREVYMIS [Concomitant]
     Active Substance: LETERMOVIR
     Dosage: 240 MILLIGRAM, QD
     Route: 048
     Dates: start: 20220207
  9. SYNTHROID [Concomitant]
     Active Substance: LEVOTHYROXINE SODIUM
     Dosage: 112 MICROGRAM, TAKE ON AN EMPTY STOMACH WITH A GLASS OF WATER AT LEAST 30-60 MINUTES BEFORE BREAKFAS
     Route: 048
     Dates: start: 20220111
  10. MELATONIN [Concomitant]
     Active Substance: MELATONIN
     Indication: Insomnia
     Dosage: 3 MILLIGRAM NIGHTLY AS NEEDED (INSOMNIA)
     Route: 048
  11. VITAMINS [Concomitant]
     Active Substance: VITAMINS
     Dosage: 1 DOSAGE FORM, DAILY WITH LUNCH
     Route: 048
     Dates: start: 20190823
  12. ZOFRAN [Concomitant]
     Active Substance: ONDANSETRON HYDROCHLORIDE
     Dosage: 4 MILLIGRAM, EVERY 6 HOURS AS NEEDED FOR NAUSEA OR VOMITING
     Route: 048
     Dates: start: 20211001
  13. PRAVACHOL [Concomitant]
     Active Substance: PRAVASTATIN SODIUM
     Dosage: 5 MILLIGRAM, QD
     Route: 048
     Dates: start: 20210913
  14. DELTASONE [Concomitant]
     Active Substance: PREDNISONE
     Dosage: 5 MILLIGRAM, QD
     Route: 048
     Dates: start: 20220112
  15. SENOKOT-S [Concomitant]
     Active Substance: DOCUSATE SODIUM\SENNOSIDES
     Indication: Constipation
     Dosage: 2 DOSAGE FORM, BID AS NEEDED
     Route: 048
     Dates: start: 20210413
  16. AZACITIDINE [Concomitant]
     Active Substance: AZACITIDINE
     Dosage: 130 MILLIGRAM, QD ON DAYS 1-7
     Route: 042
     Dates: start: 20220501, end: 20220507
  17. VENETOCLAX [Concomitant]
     Active Substance: VENETOCLAX
     Dosage: 100 MILLIGRAM, QD
     Route: 048
     Dates: start: 20220501, end: 20220501
  18. VENETOCLAX [Concomitant]
     Active Substance: VENETOCLAX
     Dosage: 200 MILLIGRAM, QD
     Route: 048
     Dates: start: 20220502, end: 20220502
  19. VENETOCLAX [Concomitant]
     Active Substance: VENETOCLAX
     Dosage: 400 MILLIGRAM, QD
     Route: 048
     Dates: start: 20220503, end: 20220503
  20. VENETOCLAX [Concomitant]
     Active Substance: VENETOCLAX
     Dosage: 100 MILLIGRAM, QD
     Route: 048
     Dates: start: 20220504, end: 20220524

REACTIONS (2)
  - Transaminases increased [Unknown]
  - Product prescribing issue [Unknown]

NARRATIVE: CASE EVENT DATE: 20220501
